FAERS Safety Report 13431378 (Version 1)
Quarter: 2017Q2

REPORT INFORMATION
  Report Type: Spontaneous
  Country: US (occurrence: US)
  Receive Date: 20170412
  Receipt Date: 20170412
  Transmission Date: 20170830
  Serious: No
  Sender: FDA-Public Use
  Company Number: US-ASTRAZENECA-2017SE35358

PATIENT
  Age: 519 Month
  Sex: Male
  Weight: 93 kg

DRUGS (9)
  1. SEROQUEL [Suspect]
     Active Substance: QUETIAPINE FUMARATE
     Indication: ANXIETY
     Dosage: ONE TO TWO TABLETS FOUR TIMES DAILY AS NEEDED
     Route: 048
     Dates: start: 20170321
  2. SEROQUEL [Suspect]
     Active Substance: QUETIAPINE FUMARATE
     Indication: MAJOR DEPRESSION
     Dosage: ONE TO TWO TABLETS FOUR TIMES DAILY AS NEEDED
     Route: 048
     Dates: start: 20170321
  3. NEURONTIN [Concomitant]
     Active Substance: GABAPENTIN
     Indication: NEURALGIA
     Dosage: DAILY
     Route: 048
     Dates: start: 2005
  4. SEROQUEL [Suspect]
     Active Substance: QUETIAPINE FUMARATE
     Indication: SLEEP DISORDER
     Dosage: GENERIC, ONE TO TWO TABLETS FOUR TIMES DAILY AS NEEDED
     Route: 048
     Dates: start: 201611, end: 20170320
  5. SEROQUEL [Suspect]
     Active Substance: QUETIAPINE FUMARATE
     Indication: SLEEP DISORDER
     Dosage: ONE TO TWO TABLETS FOUR TIMES DAILY AS NEEDED
     Route: 048
     Dates: start: 20170321
  6. WELLBUTRIN [Concomitant]
     Active Substance: BUPROPION HYDROCHLORIDE
     Indication: DEPRESSION
     Dosage: DAILY
     Route: 048
     Dates: start: 2005
  7. SEROQUEL [Suspect]
     Active Substance: QUETIAPINE FUMARATE
     Indication: ANXIETY
     Dosage: GENERIC, ONE TO TWO TABLETS FOUR TIMES DAILY AS NEEDED
     Route: 048
     Dates: start: 201611, end: 20170320
  8. SEROQUEL [Suspect]
     Active Substance: QUETIAPINE FUMARATE
     Indication: MAJOR DEPRESSION
     Dosage: GENERIC, ONE TO TWO TABLETS FOUR TIMES DAILY AS NEEDED
     Route: 048
     Dates: start: 201611, end: 20170320
  9. NEURONTIN [Concomitant]
     Active Substance: GABAPENTIN
     Indication: SEIZURE
     Dosage: DAILY
     Route: 048
     Dates: start: 2005

REACTIONS (6)
  - Rash [Recovered/Resolved]
  - Skin irritation [Recovered/Resolved]
  - Off label use [Not Recovered/Not Resolved]
  - Product substitution issue [Unknown]
  - Insomnia [Unknown]
  - Drug ineffective [Unknown]

NARRATIVE: CASE EVENT DATE: 201611
